FAERS Safety Report 22518399 (Version 2)
Quarter: 2023Q2

REPORT INFORMATION
  Report Type: Spontaneous
  Country: US (occurrence: US)
  Receive Date: 20230605
  Receipt Date: 20230626
  Transmission Date: 20230722
  Serious: Yes (Hospitalization)
  Sender: FDA-Public Use
  Company Number: US-BEH-2023159379

PATIENT
  Sex: Female

DRUGS (3)
  1. HIZENTRA [Suspect]
     Active Substance: HUMAN IMMUNOGLOBULIN G
     Indication: Myasthenia gravis
     Dosage: 20 GRAM, QW
     Route: 058
     Dates: start: 202211
  2. FERROUS SULFATE [Concomitant]
     Active Substance: FERROUS SULFATE
  3. PREDNISONE [Concomitant]
     Active Substance: PREDNISONE

REACTIONS (3)
  - Haemoglobin decreased [Recovered/Resolved]
  - No adverse event [Unknown]
  - Off label use [Unknown]
